FAERS Safety Report 5772158-3 (Version None)
Quarter: 2008Q2

REPORT INFORMATION
  Report Type: 
  Country: None (occurrence: None)
  Receive Date: 20080610
  Receipt Date: 20080530
  Transmission Date: 20081010
  Serious: Yes (Life-Threatening, Hospitalization)
  Sender: FDA-Public Use
  Company Number: 232483J08USA

PATIENT
  Age: 43 Year
  Sex: Female
  Weight: 63.5036 kg

DRUGS (2)
  1. REBIF [Suspect]
     Indication: MULTIPLE SCLEROSIS
     Dosage: 44 MCG, 3 IN 1 WEEKS, SUBCUTANEOUS
     Route: 058
     Dates: start: 20070219
  2. LEVOTHYROXINE (LEVOTHYROXINE /0068001/) [Concomitant]

REACTIONS (7)
  - ABASIA [None]
  - COMA [None]
  - HEAD INJURY [None]
  - INTRACRANIAL PRESSURE INCREASED [None]
  - MUSCLE SPASTICITY [None]
  - ROAD TRAFFIC ACCIDENT [None]
  - THORACIC VERTEBRAL FRACTURE [None]
